FAERS Safety Report 4786055-3 (Version None)
Quarter: 2005Q3

REPORT INFORMATION
  Report Type: 
  Country: None (occurrence: None)
  Receive Date: 20050930
  Receipt Date: 20050919
  Transmission Date: 20060218
  Serious: Yes (Hospitalization)
  Sender: FDA-Public Use
  Company Number: 2005130552

PATIENT
  Age: 79 Year
  Sex: Female
  Weight: 85 kg

DRUGS (5)
  1. FRAGMIN [Suspect]
     Indication: KNEE ARTHROPLASTY
     Dosage: 5000 I.U. (1 IN 1 D), SUBCUTANEOUS
     Route: 058
     Dates: start: 20050828
  2. DICLOMELAN (DICLOFENAC SODIUM) [Concomitant]
  3. TRAMADOL HCL [Concomitant]
  4. PANTOPRAZOLE SODIUM [Concomitant]
  5. MODURETIC 5-50 [Concomitant]

REACTIONS (2)
  - DEEP VEIN THROMBOSIS [None]
  - POST PROCEDURAL COMPLICATION [None]
